FAERS Safety Report 7058415-1 (Version None)
Quarter: 2010Q4

REPORT INFORMATION
  Report Type: 
  Country: None (occurrence: None)
  Receive Date: 20101022
  Receipt Date: 20101005
  Transmission Date: 20110411
  Serious: No
  Sender: FDA-Public Use
  Company Number: US-PFIZER INC-2010127179

PATIENT
  Sex: Male
  Weight: 70.295 kg

DRUGS (13)
  1. TOVIAZ [Suspect]
     Indication: HYPERTONIC BLADDER
     Dosage: 8 MG, 1X/DAY
     Route: 048
     Dates: start: 20090501
  2. LOPRESSOR [Concomitant]
     Indication: BLOOD PRESSURE ABNORMAL
     Dosage: 25 MG, 2X/DAY
     Route: 048
  3. PLAVIX [Concomitant]
     Indication: CARDIAC DISORDER
     Dosage: 75 MG, DAILY
     Route: 048
  4. GABAPENTIN [Concomitant]
     Indication: OCCIPITAL NEURALGIA
     Dosage: 100 MG, 6X/DAY
     Route: 048
  5. DEPAKOTE [Concomitant]
     Indication: MOOD ALTERED
     Dosage: 250 MG, DAILY
     Route: 048
  6. DEPAKOTE [Concomitant]
     Indication: MOOD SWINGS
  7. ACETYLSALICYLIC ACID [Concomitant]
     Indication: CARDIAC DISORDER
     Dosage: 81 MG, DAILY
     Route: 048
  8. PROTONIX [Concomitant]
     Indication: GASTRIC DISORDER
     Dosage: 40 MG, DAILY
     Route: 048
  9. NAMENDA [Concomitant]
     Indication: DEMENTIA
     Dosage: 10 MG, 2X/DAY
     Route: 048
  10. EXELON [Concomitant]
     Indication: DEMENTIA
     Dosage: 9.5 MG, DAILY
  11. RENAGEL [Concomitant]
     Indication: RENAL DISORDER
     Dosage: 800 MG, 3X/DAY
     Route: 048
  12. IMDUR [Concomitant]
     Indication: CARDIAC DISORDER
     Dosage: UNK, DAILY
     Route: 048
  13. MACROBID [Concomitant]
     Indication: SWELLING
     Dosage: 12.5 MG, DAILY
     Route: 048

REACTIONS (2)
  - SLEEP DISORDER [None]
  - SOMNOLENCE [None]
